FAERS Safety Report 21518887 (Version 1)
Quarter: 2022Q4

REPORT INFORMATION
  Report Type: Other
  Country: CN (occurrence: None)
  Receive Date: 20221028
  Receipt Date: 20221028
  Transmission Date: 20230112
  Serious: Yes (Other)
  Sender: FDA-Public Use
  Company Number: CN-ROCHE-3205929

PATIENT
  Age: 59 Year

DRUGS (18)
  1. ERLOTINIB [Suspect]
     Active Substance: ERLOTINIB
     Indication: Adenocarcinoma
     Dosage: SECOND-LINE
     Route: 065
     Dates: start: 2016
  2. ERLOTINIB [Suspect]
     Active Substance: ERLOTINIB
     Dosage: FOURTH-LINE TREATMENT
     Route: 065
     Dates: start: 2018
  3. BEVACIZUMAB [Suspect]
     Active Substance: BEVACIZUMAB
     Indication: Adenocarcinoma
     Dosage: SECOND-LINE
     Route: 065
     Dates: start: 2016
  4. BEVACIZUMAB [Suspect]
     Active Substance: BEVACIZUMAB
     Dosage: SIXTH-LINE TREATMENT
     Route: 065
     Dates: start: 2017
  5. BEVACIZUMAB [Suspect]
     Active Substance: BEVACIZUMAB
     Route: 065
     Dates: start: 2020
  6. ATEZOLIZUMAB [Suspect]
     Active Substance: ATEZOLIZUMAB
     Indication: Adenocarcinoma
     Route: 065
     Dates: start: 2020
  7. CRIZOTINIB [Suspect]
     Active Substance: CRIZOTINIB
     Indication: Adenocarcinoma
     Dosage: SECOND-LINE
     Route: 065
     Dates: start: 2016
  8. CRIZOTINIB [Suspect]
     Active Substance: CRIZOTINIB
     Dosage: THIRD-LINE THERAPY
     Route: 065
     Dates: start: 2017
  9. CRIZOTINIB [Suspect]
     Active Substance: CRIZOTINIB
     Dosage: FIFTH-LINE THERAPY
     Route: 065
     Dates: start: 2019
  10. OSIMERTINIB [Suspect]
     Active Substance: OSIMERTINIB
     Indication: Adenocarcinoma
     Dosage: THIRD-LINE TREATMENT
     Route: 065
     Dates: start: 2017
  11. OSIMERTINIB [Suspect]
     Active Substance: OSIMERTINIB
     Dosage: FIFTH-LINE TREATMENT
     Route: 065
     Dates: start: 2019
  12. OSIMERTINIB [Suspect]
     Active Substance: OSIMERTINIB
     Dosage: SEVENTH-LINE TREATMENT
     Route: 065
     Dates: start: 2020
  13. FLUOROURACIL [Suspect]
     Active Substance: FLUOROURACIL
     Indication: Adenocarcinoma
     Dosage: FOURTH-LINE TREATMENT
     Route: 065
     Dates: start: 2018
  14. TEMOZOLOMIDE [Suspect]
     Active Substance: TEMOZOLOMIDE
     Indication: Adenocarcinoma
     Dosage: SIXTH-LINE TREATMENT
     Route: 065
     Dates: start: 2020
  15. CABOZANTINIB [Concomitant]
     Active Substance: CABOZANTINIB
  16. TRAMETINIB [Concomitant]
     Active Substance: TRAMETINIB
  17. PEMETREXED [Concomitant]
     Active Substance: PEMETREXED
     Indication: Adenocarcinoma
     Dosage: FIRST-LINE TREATMENT
  18. CISPLATIN [Concomitant]
     Active Substance: CISPLATIN
     Indication: Adenocarcinoma
     Dosage: FIRST-LINE TREATMENT

REACTIONS (5)
  - Metastases to pleura [Unknown]
  - Disease progression [Unknown]
  - Metastases to lung [Recovering/Resolving]
  - Metastases to liver [Recovering/Resolving]
  - Drug resistance [Unknown]

NARRATIVE: CASE EVENT DATE: 20171101
